FAERS Safety Report 4879069-6 (Version None)
Quarter: 2005Q4

REPORT INFORMATION
  Report Type: 
  Country: None (occurrence: None)
  Receive Date: 20051209
  Receipt Date: 20050907
  Transmission Date: 20060501
  Serious: Yes (Other)
  Sender: FDA-Public Use
  Company Number: USA-2003-0003885

PATIENT
  Age: 40 Year
  Sex: Female
  Weight: 60.8 kg

DRUGS (11)
  1. OXYCONTIN [Suspect]
     Indication: PAIN
     Dosage: 80 MG TID ORAL
     Route: 048
     Dates: start: 19990520
  2. ELAVIL [Concomitant]
  3. VALIUM [Concomitant]
  4. FELDENE [Concomitant]
  5. LORCET-HD [Concomitant]
  6. FASTIN [Concomitant]
  7. XENICAL [Concomitant]
  8. KLONOPIN [Concomitant]
  9. CLIMARA [Concomitant]
  10. EFFEXOR [Concomitant]
  11. ESTRADERM [Concomitant]

REACTIONS (33)
  - ARTHRALGIA [None]
  - BACK PAIN [None]
  - BLOOD PRESSURE DECREASED [None]
  - COUGH [None]
  - DEHYDRATION [None]
  - DEPRESSION [None]
  - DIARRHOEA [None]
  - DRUG ABUSER [None]
  - DRUG DEPENDENCE [None]
  - DRUG INEFFECTIVE [None]
  - DRUG WITHDRAWAL SYNDROME [None]
  - EAR PAIN [None]
  - FALL [None]
  - GASTROENTERITIS [None]
  - HEADACHE [None]
  - HYPERHIDROSIS [None]
  - HYPOAESTHESIA [None]
  - INJURY [None]
  - INSOMNIA [None]
  - IRRITABILITY [None]
  - LOSS OF CONSCIOUSNESS [None]
  - MUSCULOSKELETAL PAIN [None]
  - NAUSEA [None]
  - NERVOUSNESS [None]
  - PAIN [None]
  - PAIN IN EXTREMITY [None]
  - PHARYNGITIS [None]
  - ROAD TRAFFIC ACCIDENT [None]
  - SWELLING [None]
  - TREMOR [None]
  - UPPER RESPIRATORY TRACT INFECTION [None]
  - VOMITING [None]
  - WHEEZING [None]
